FAERS Safety Report 5467560-3 (Version None)
Quarter: 2007Q3

REPORT INFORMATION
  Report Type: 
  Country: None (occurrence: None)
  Receive Date: 20070921
  Receipt Date: 20070912
  Transmission Date: 20080115
  Serious: Yes (Hospitalization)
  Sender: FDA-Public Use
  Company Number: 2007AL003790

PATIENT
  Age: 76 Year
  Sex: Male
  Weight: 97.5234 kg

DRUGS (9)
  1. CARBIDOPA AND LEVODOPA TABLETS USP, 25 MG/100 MG (PUREPAC) [Suspect]
     Indication: PARKINSON'S DISEASE
     Dosage: 25 MG;QID;PO
     Route: 048
     Dates: start: 20060101
  2. AGGRENOX [Concomitant]
  3. HYDROCHLOROTHIAZIDE [Concomitant]
  4. METOPROLOL SUCCINATE [Concomitant]
  5. TERAZOSIN HCL [Concomitant]
  6. LIPITOR [Concomitant]
  7. GLYBURIDE [Concomitant]
  8. AVELOX [Concomitant]
  9. ZOLOFT [Concomitant]

REACTIONS (5)
  - ANXIETY [None]
  - DIARRHOEA [None]
  - NAUSEA [None]
  - PNEUMONIA [None]
  - SWOLLEN TONGUE [None]
